FAERS Safety Report 10684586 (Version 1)
Quarter: 2014Q4

REPORT INFORMATION
  Report Type: Spontaneous
  Country: US (occurrence: None)
  Receive Date: 20141230
  Receipt Date: 20141230
  Transmission Date: 20150529
  Serious: No
  Sender: FDA-Public Use
  Company Number: None

PATIENT
  Age: 34 Year
  Sex: Male
  Weight: 52.16 kg

DRUGS (1)
  1. VIVITROL [Suspect]
     Active Substance: NALTREXONE
     Indication: ALCOHOLISM

REACTIONS (6)
  - Abdominal pain upper [None]
  - Decreased appetite [None]
  - Aggression [None]
  - Anger [None]
  - Dizziness [None]
  - Unevaluable event [None]

NARRATIVE: CASE EVENT DATE: 20141209
